FAERS Safety Report 15681877 (Version 1)
Quarter: 2018Q4

REPORT INFORMATION
  Report Type: Report from Study
  Country: CA (occurrence: CA)
  Receive Date: 20181203
  Receipt Date: 20181203
  Transmission Date: 20190205
  Serious: Yes (Other)
  Sender: FDA-Public Use
  Company Number: PHHY2017CA188016

PATIENT
  Age: 52 Year
  Sex: Male

DRUGS (1)
  1. GILENYA [Suspect]
     Active Substance: FINGOLIMOD HYDROCHLORIDE
     Indication: PRODUCT USED FOR UNKNOWN INDICATION
     Dosage: UNK
     Route: 048
     Dates: start: 20160426

REACTIONS (5)
  - Nervousness [Unknown]
  - Fatigue [Unknown]
  - Disease recurrence [Unknown]
  - Hypoaesthesia [Unknown]
  - Expanded disability status scale [Unknown]

NARRATIVE: CASE EVENT DATE: 201712
